FAERS Safety Report 23857042 (Version 1)
Quarter: 2024Q2

REPORT INFORMATION
  Report Type: Spontaneous
  Country: AU (occurrence: AU)
  Receive Date: 20240515
  Receipt Date: 20240515
  Transmission Date: 20240716
  Serious: Yes (Hospitalization, Other)
  Sender: FDA-Public Use
  Company Number: AU-JNJFOC-20240529356

PATIENT
  Age: 53 Year
  Sex: Female

DRUGS (17)
  1. TOPAMAX [Suspect]
     Active Substance: TOPIRAMATE
     Indication: Pain
     Route: 065
  2. LYRICA [Suspect]
     Active Substance: PREGABALIN
     Indication: Product used for unknown indication
     Route: 050
     Dates: start: 20230531
  3. DULOXETINE HYDROCHLORIDE [Suspect]
     Active Substance: DULOXETINE HYDROCHLORIDE
     Indication: Neuralgia
     Route: 050
     Dates: end: 20230428
  4. METHYLPREDNISOLONE [Suspect]
     Active Substance: METHYLPREDNISOLONE
     Indication: Visual impairment
     Route: 050
     Dates: start: 20220923, end: 20220925
  5. VUMERITY [Suspect]
     Active Substance: DIROXIMEL FUMARATE
     Indication: Product used for unknown indication
     Route: 050
     Dates: start: 20220801
  6. VUMERITY [Suspect]
     Active Substance: DIROXIMEL FUMARATE
     Indication: Relapsing-remitting multiple sclerosis
     Route: 050
     Dates: start: 20220808
  7. VUMERITY [Suspect]
     Active Substance: DIROXIMEL FUMARATE
     Route: 050
     Dates: start: 20220829
  8. VUMERITY [Suspect]
     Active Substance: DIROXIMEL FUMARATE
     Route: 050
     Dates: start: 2022, end: 20221011
  9. VUMERITY [Suspect]
     Active Substance: DIROXIMEL FUMARATE
     Route: 050
     Dates: start: 20220801
  10. VUMERITY [Suspect]
     Active Substance: DIROXIMEL FUMARATE
     Route: 050
     Dates: start: 20220801
  11. VUMERITY [Suspect]
     Active Substance: DIROXIMEL FUMARATE
     Route: 050
     Dates: start: 20220801, end: 20230720
  12. PALEXIA [Concomitant]
     Active Substance: TAPENTADOL HYDROCHLORIDE
     Dates: start: 20230616
  13. KETAMINE HYDROCHLORIDE [Concomitant]
     Active Substance: KETAMINE HYDROCHLORIDE
  14. LITHIUM [Concomitant]
     Active Substance: LITHIUM
  15. NORTRIPTYLINE HYDROCHLORIDE [Concomitant]
     Active Substance: NORTRIPTYLINE HYDROCHLORIDE
  16. TEMAZEPAM [Concomitant]
     Active Substance: TEMAZEPAM
  17. VENLAFAXINE HYDROCHLORIDE [Concomitant]
     Active Substance: VENLAFAXINE HYDROCHLORIDE
     Dates: start: 20230803

REACTIONS (44)
  - Rectal prolapse [Unknown]
  - Overdose [Unknown]
  - Intestinal obstruction [Recovered/Resolved]
  - Mental impairment [Not Recovered/Not Resolved]
  - Multiple sclerosis [Not Recovered/Not Resolved]
  - Faecaloma [Recovered/Resolved]
  - Abdominal distension [Not Recovered/Not Resolved]
  - Affective disorder [Not Recovered/Not Resolved]
  - Anal hypoaesthesia [Not Recovered/Not Resolved]
  - Anal incontinence [Not Recovered/Not Resolved]
  - Anxiety [Unknown]
  - Asthenia [Unknown]
  - Eye movement disorder [Unknown]
  - Chills [Unknown]
  - Constipation [Recovered/Resolved]
  - Diarrhoea [Recovered/Resolved]
  - Disturbance in attention [Not Recovered/Not Resolved]
  - Dizziness [Recovered/Resolved]
  - Faeces soft [Recovered/Resolved]
  - Gastrointestinal disorder [Recovered/Resolved]
  - Haemorrhoids [Recovered/Resolved]
  - Herpes zoster [Recovered/Resolved]
  - Hypotension [Not Recovered/Not Resolved]
  - Impulsive behaviour [Not Recovered/Not Resolved]
  - Insomnia [Not Recovered/Not Resolved]
  - Malaise [Unknown]
  - Muscle atrophy [Unknown]
  - Muscular weakness [Unknown]
  - Nausea [Not Recovered/Not Resolved]
  - Nervous system disorder [Unknown]
  - Neurogenic bowel [Unknown]
  - Pain [Recovered/Resolved]
  - Post-traumatic stress disorder [Unknown]
  - Rectal prolapse [Unknown]
  - Stress [Unknown]
  - Tinnitus [Recovered/Resolved]
  - Urinary tract infection [Unknown]
  - Vision blurred [Unknown]
  - Vomiting [Recovered/Resolved]
  - Weight decreased [Unknown]
  - Procedural pain [Not Recovered/Not Resolved]
  - Product prescribing error [Recovered/Resolved]
  - Urinary incontinence [Recovered/Resolved]
  - Product use in unapproved indication [Unknown]

NARRATIVE: CASE EVENT DATE: 20220101
